FAERS Safety Report 8873945 (Version 1)
Quarter: 2012Q4

REPORT INFORMATION
  Report Type: 
  Country: US (occurrence: US)
  Receive Date: 20121030
  Receipt Date: 20121030
  Transmission Date: 20130627
  Serious: Yes (Other)
  Sender: FDA-Public Use
  Company Number: CHPA2012US022142

PATIENT
  Age: 65 Year
  Sex: Female

DRUGS (1)
  1. TRIAMINIC DAY TIME COLD AND COUGH [Suspect]
     Indication: HYPERTENSION
     Dosage: MORE THAN TSP, Q4H
     Route: 048

REACTIONS (7)
  - Rotator cuff syndrome [Not Recovered/Not Resolved]
  - Hypertension [Not Recovered/Not Resolved]
  - Sinusitis [Not Recovered/Not Resolved]
  - Injury [Not Recovered/Not Resolved]
  - Swelling face [Unknown]
  - Therapeutic response unexpected [Unknown]
  - Off label use [Unknown]
